FAERS Safety Report 6844820-2 (Version None)
Quarter: 2010Q3

REPORT INFORMATION
  Report Type: 
  Country: None (occurrence: None)
  Receive Date: 20100715
  Receipt Date: 20100707
  Transmission Date: 20110219
  Serious: Yes (Hospitalization)
  Sender: FDA-Public Use
  Company Number: JP-PFIZER INC-2010073120

PATIENT
  Age: 65 Year
  Sex: Female
  Weight: 49.8 kg

DRUGS (3)
  1. NORVASC [Suspect]
     Indication: HYPERTENSION
     Dosage: 5 MG, 1X/DAY
     Route: 048
     Dates: start: 20090817, end: 20100609
  2. LASIX [Concomitant]
     Indication: OEDEMA
     Dosage: 40 MG, 1X/DAY
     Route: 048
     Dates: start: 20100430
  3. GLUCONSAN K [Concomitant]
     Indication: HYPOKALAEMIA
     Dosage: 1 G, 3X/DAY
     Dates: start: 20100507

REACTIONS (4)
  - COLLAGEN DISORDER [None]
  - ERYTHEMA [None]
  - LIVER DISORDER [None]
  - OEDEMA [None]
